FAERS Safety Report 7467573-6 (Version None)
Quarter: 2011Q2

REPORT INFORMATION
  Report Type: 
  Country: None (occurrence: None)
  Receive Date: 20110509
  Receipt Date: 20110426
  Transmission Date: 20111010
  Serious: Yes (Other)
  Sender: FDA-Public Use
  Company Number: US-BAYER-2011-036665

PATIENT
  Age: 80 Year
  Sex: Male
  Weight: 86.168 kg

DRUGS (6)
  1. VITAMIN C [Concomitant]
  2. VITAMIN E [Concomitant]
  3. CELEBREX [Suspect]
     Indication: OSTEOARTHRITIS
     Dosage: UNK UNK, QD
  4. SYNVISC [Suspect]
     Indication: OSTEOARTHRITIS
     Dosage: UNK
     Dates: start: 20010101
  5. GLUCOSAMINE W/CHONDROITIN SULFATE [Concomitant]
  6. ASPIRIN [Suspect]
     Indication: OSTEOARTHRITIS

REACTIONS (2)
  - PROSTATIC DISORDER [None]
  - URINE ANALYSIS ABNORMAL [None]
